FAERS Safety Report 6775805-2 (Version None)
Quarter: 2010Q2

REPORT INFORMATION
  Report Type: 
  Country: None (occurrence: None)
  Receive Date: 20100617
  Receipt Date: 20100608
  Transmission Date: 20101027
  Serious: Yes (Other)
  Sender: FDA-Public Use
  Company Number: GB-ABBOTT-10P-167-0639989-00

PATIENT
  Age: 5 Year
  Sex: Female

DRUGS (2)
  1. DEPAKENE [Suspect]
     Indication: GRAND MAL CONVULSION
     Dosage: DAILY DOSE: 10MG
     Route: 048
     Dates: start: 20090801
  2. DEPAKENE [Suspect]
     Dosage: DAILY DOSE: 20MG
     Route: 048
     Dates: end: 20100324

REACTIONS (2)
  - BLOOD ALKALINE PHOSPHATASE INCREASED [None]
  - CHOLESTATIC LIVER INJURY [None]
